FAERS Safety Report 8375961-9 (Version None)
Quarter: 2012Q2

REPORT INFORMATION
  Report Type: 
  Country: None (occurrence: None)
  Receive Date: 20120522
  Receipt Date: 20120514
  Transmission Date: 20120825
  Serious: Yes (Hospitalization)
  Sender: FDA-Public Use
  Company Number: US-ASTELLAS-2012US004722

PATIENT
  Sex: Female

DRUGS (2)
  1. ERLOTINIB HYDROCHLORIDE [Suspect]
     Indication: LUNG NEOPLASM MALIGNANT
     Dosage: 150 MG, UID/QD
     Route: 048
     Dates: start: 20120329, end: 20120414
  2. ERLOTINIB HYDROCHLORIDE [Suspect]
     Dosage: UNK
     Route: 048

REACTIONS (7)
  - BLOOD PRESSURE ABNORMAL [None]
  - VOMITING [None]
  - DIARRHOEA [None]
  - NAUSEA [None]
  - ELECTROLYTE IMBALANCE [None]
  - DEHYDRATION [None]
  - RASH [None]
